FAERS Safety Report 21437785 (Version 2)
Quarter: 2022Q4

REPORT INFORMATION
  Report Type: Report from Study
  Country: DE (occurrence: DE)
  Receive Date: 20221011
  Receipt Date: 20221013
  Transmission Date: 20230112
  Serious: Yes (Hospitalization)
  Sender: FDA-Public Use
  Company Number: DE-CELGENE-DEU-20180604782

PATIENT
  Age: 38 Year
  Sex: Female

DRUGS (29)
  1. PACLITAXEL [Suspect]
     Active Substance: PACLITAXEL
     Indication: Triple negative breast cancer
     Dosage: 125 MILLIGRAM/SQ. METER
     Route: 042
     Dates: start: 20180301
  2. PACLITAXEL [Suspect]
     Active Substance: PACLITAXEL
     Dosage: 125 MILLIGRAM/SQ. METER (236.25 MG)
     Route: 042
     Dates: start: 2018, end: 20180524
  3. ATEZOLIZUMAB [Suspect]
     Active Substance: ATEZOLIZUMAB
     Indication: Triple negative breast cancer
     Dosage: 2 WK
     Route: 042
     Dates: start: 20180301, end: 20180604
  4. ATEZOLIZUMAB [Suspect]
     Active Substance: ATEZOLIZUMAB
     Dosage: 60 MILLIGRAM/SQ. METER
     Route: 042
     Dates: start: 2018, end: 20180618
  5. ATEZOLIZUMAB [Suspect]
     Active Substance: ATEZOLIZUMAB
     Dosage: 60 MILLIGRAM/SQ. METER
     Route: 042
     Dates: start: 20180702, end: 20180716
  6. DOXORUBICIN [Suspect]
     Active Substance: DOXORUBICIN
     Indication: Triple negative breast cancer
     Dosage: 60 MILLIGRAM/SQ. METER (113.4 MG)
     Route: 042
     Dates: start: 20180604, end: 20180604
  7. DOXORUBICIN [Suspect]
     Active Substance: DOXORUBICIN
     Dosage: 60 MILLIGRAM/SQ. METER (113.4 MG)
     Route: 042
     Dates: start: 2018, end: 20180618
  8. DOXORUBICIN [Suspect]
     Active Substance: DOXORUBICIN
     Dosage: 60 MILLIGRAM/SQ. METER (113.4 MG)
     Route: 042
     Dates: start: 20180702, end: 20180716
  9. CYCLOPHOSPHAMIDE [Suspect]
     Active Substance: CYCLOPHOSPHAMIDE
     Indication: Triple negative breast cancer
     Dosage: 600 MILLIGRAM/SQ. METER
     Route: 042
     Dates: start: 20180604, end: 20180604
  10. CYCLOPHOSPHAMIDE [Suspect]
     Active Substance: CYCLOPHOSPHAMIDE
     Dosage: 1134 MILLIGRAM
     Route: 042
     Dates: start: 2018, end: 20180618
  11. CYCLOPHOSPHAMIDE [Suspect]
     Active Substance: CYCLOPHOSPHAMIDE
     Dosage: 81 MILLIGRAM
     Route: 042
     Dates: start: 20180702, end: 20180716
  12. POSIFORMIN [Concomitant]
     Indication: Hordeolum
  13. POSIFORMIN [Concomitant]
  14. POSIFORMIN [Concomitant]
     Dosage: FREQUENCY TEXT: NOT PROVIDED
     Route: 065
     Dates: start: 20180410
  15. POSIFORMIN [Concomitant]
     Dosage: FREQUENCY TEXT: NOT PROVIDED
     Route: 065
     Dates: start: 20180517, end: 20180601
  16. PALONOSETRON [Concomitant]
     Active Substance: PALONOSETRON
     Indication: Prophylaxis of nausea and vomiting
     Dates: start: 20180604, end: 20180604
  17. PALONOSETRON [Concomitant]
     Active Substance: PALONOSETRON
     Dates: start: 20180618, end: 20180618
  18. PALONOSETRON [Concomitant]
     Active Substance: PALONOSETRON
     Dates: start: 20180702, end: 20180702
  19. DIMENHYDRINATE [Concomitant]
     Active Substance: DIMENHYDRINATE
     Indication: Nausea
     Dosage: FREQUENCY TEXT: NOT PROVIDED
     Route: 065
     Dates: start: 20180604, end: 20180809
  20. HYDROCORTISONE [Concomitant]
     Active Substance: HYDROCORTISONE
     Indication: Dermatitis allergic
     Dosage: UNIT DOSE: 0.5 OTHER?FREQUENCY TEXT: PRN
     Route: 061
     Dates: start: 20180308, end: 20180517
  21. ACETAMINOPHEN [Concomitant]
     Active Substance: ACETAMINOPHEN
     Indication: Headache
     Dosage: FREQUENCY TEXT: NOT PROVIDED
     Route: 065
     Dates: start: 20180528, end: 20180528
  22. ACETAMINOPHEN [Concomitant]
     Active Substance: ACETAMINOPHEN
     Indication: Pyrexia
     Dosage: FREQUENCY TEXT: NOT PROVIDED
     Route: 065
     Dates: start: 20180512, end: 20180610
  23. ACETAMINOPHEN [Concomitant]
     Active Substance: ACETAMINOPHEN
     Indication: Myalgia
     Dosage: FREQUENCY TEXT: AS REQUIRED
     Route: 048
     Dates: start: 20180621, end: 20180627
  24. MESNA [Concomitant]
     Active Substance: MESNA
     Indication: Product used for unknown indication
     Dosage: FREQUENCY TEXT: NOT PROVIDED
     Route: 065
     Dates: start: 20180604, end: 20180604
  25. MESNA [Concomitant]
     Active Substance: MESNA
     Route: 065
     Dates: start: 20180618, end: 20180618
  26. MESNA [Concomitant]
     Active Substance: MESNA
     Route: 065
     Dates: start: 20180702, end: 20180702
  27. ZOFRAN [Concomitant]
     Active Substance: ONDANSETRON HYDROCHLORIDE
     Indication: Vomiting
     Dates: start: 20180702
  28. ZOFRAN [Concomitant]
     Active Substance: ONDANSETRON HYDROCHLORIDE
     Dates: start: 20180618
  29. CITRIC ACID MONOHYDRATE\POTASSIUM BICARBONATE\POTASSIUM CITRATE [Concomitant]
     Active Substance: CITRIC ACID MONOHYDRATE\POTASSIUM BICARBONATE\POTASSIUM CITRATE
     Indication: Hypokalaemia
     Dates: start: 20180716, end: 20180717

REACTIONS (2)
  - Infusion related reaction [Recovered/Resolved]
  - Malaise [Recovered/Resolved]

NARRATIVE: CASE EVENT DATE: 20180604
